FAERS Safety Report 23819259 (Version 1)
Quarter: 2024Q2

REPORT INFORMATION
  Report Type: Spontaneous
  Country: TR (occurrence: TR)
  Receive Date: 20240506
  Receipt Date: 20240506
  Transmission Date: 20240717
  Serious: Yes (Other)
  Sender: FDA-Public Use
  Company Number: TR-AMGEN-TURSP2024085985

PATIENT

DRUGS (3)
  1. BEVACIZUMAB [Suspect]
     Active Substance: BEVACIZUMAB
     Indication: Age-related macular degeneration
     Dosage: UNK
  2. BEVACIZUMAB [Suspect]
     Active Substance: BEVACIZUMAB
     Indication: Diabetic retinal oedema
  3. BEVACIZUMAB [Suspect]
     Active Substance: BEVACIZUMAB
     Indication: Retinal vein occlusion

REACTIONS (17)
  - Endophthalmitis [Unknown]
  - Rhegmatogenous retinal detachment [Unknown]
  - Retinal detachment [Unknown]
  - Iris adhesions [Unknown]
  - Hypopyon [Unknown]
  - Posterior capsule opacification [Unknown]
  - Cystoid macular oedema [Unknown]
  - Atrophy of globe [Unknown]
  - Macular ischaemia [Unknown]
  - Staphylococcus test positive [Unknown]
  - Haemophilus test positive [Unknown]
  - Ocular procedural complication [Unknown]
  - Intraocular pressure increased [Unknown]
  - Anterior chamber fibrin [Unknown]
  - Streptococcus test positive [Unknown]
  - Epiretinal membrane [Unknown]
  - Off label use [Unknown]
